FAERS Safety Report 4909466-1 (Version None)
Quarter: 2006Q1

REPORT INFORMATION
  Report Type: 
  Country: None (occurrence: None)
  Receive Date: 20060209
  Receipt Date: 20060209
  Transmission Date: 20060701
  Serious: No
  Sender: FDA-Public Use
  Company Number: None

PATIENT
  Sex: Female

DRUGS (1)
  1. COUMADIN [Suspect]
     Indication: ATRIAL FIBRILLATION
     Dosage: 2.5 MG / PO QD EXCEPT 2 PO  MONDAY AND FRIDAY
     Dates: start: 20010131

REACTIONS (1)
  - NO THERAPEUTIC RESPONSE [None]
